FAERS Safety Report 18513726 (Version 1)
Quarter: 2020Q4

REPORT INFORMATION
  Report Type: Report from Study
  Country: KR (occurrence: KR)
  Receive Date: 20201117
  Receipt Date: 20201117
  Transmission Date: 20210114
  Serious: Yes (Other)
  Sender: FDA-Public Use
  Company Number: KR-CASPER PHARMA LLC-2020CAS000587

PATIENT

DRUGS (2)
  1. BISMUTH, METRONIDAZOLE, TETRACYCLIN [Suspect]
     Active Substance: BISMUTH SUBSALICYLATE\METRONIDAZOLE\TETRACYCLINE HYDROCHLORIDE
     Indication: HELICOBACTER INFECTION
     Dosage: BISMUTH 300 MG BID, TETRACYCLINE 500 MG QID, AND METRONIDAZOLE 500 MG TID
     Route: 065
  2. ESOMEPRAZOLE. [Suspect]
     Active Substance: ESOMEPRAZOLE MAGNESIUM
     Indication: HELICOBACTER INFECTION
     Dosage: 40 MILLIGRAM, BID
     Route: 065

REACTIONS (1)
  - Supraventricular tachycardia [Unknown]
